FAERS Safety Report 6159264-9 (Version None)
Quarter: 2009Q2

REPORT INFORMATION
  Report Type: 
  Country: None (occurrence: None)
  Receive Date: 20090417
  Receipt Date: 20090323
  Transmission Date: 20091009
  Serious: No
  Sender: FDA-Public Use
  Company Number: US-BAYER-200910928BCC

PATIENT
  Age: 27 Year
  Sex: Female
  Weight: 57 kg

DRUGS (2)
  1. ALEVE (CAPLET) [Suspect]
     Indication: MIGRAINE
     Dosage: TOTAL DAILY DOSE: 880 MG  UNIT DOSE: 220 MG
     Route: 048
     Dates: start: 20090322
  2. EXCEDRIN (MIGRAINE) [Concomitant]
     Indication: MIGRAINE
     Route: 048
     Dates: start: 20090322

REACTIONS (1)
  - NAUSEA [None]
